FAERS Safety Report 8277393-0 (Version None)
Quarter: 2012Q2

REPORT INFORMATION
  Report Type: 
  Country: None (occurrence: None)
  Receive Date: 20120412
  Receipt Date: 20120403
  Transmission Date: 20120825
  Serious: Yes (Other)
  Sender: FDA-Public Use
  Company Number: US-BAYER-2012-032821

PATIENT
  Age: 45 Year
  Sex: Male
  Weight: 68.934 kg

DRUGS (1)
  1. ALEVE (CAPLET) [Suspect]
     Indication: BACK PAIN
     Dosage: 2 DF, PRN, BOTTLE COUNT 24S
     Route: 048
     Dates: start: 20120320, end: 20120331

REACTIONS (11)
  - SYNCOPE [None]
  - PRURITUS GENERALISED [None]
  - DYSPNOEA [None]
  - HYPERSENSITIVITY [None]
  - ERYTHEMA [None]
  - DIZZINESS [None]
  - SUPERFICIAL VEIN PROMINENCE [None]
  - OEDEMA PERIPHERAL [None]
  - OCULAR HYPERAEMIA [None]
  - RASH GENERALISED [None]
  - RASH [None]
